FAERS Safety Report 7932102-7 (Version None)
Quarter: 2011Q4

REPORT INFORMATION
  Report Type: 
  Country: None (occurrence: None)
  Receive Date: 20111121
  Receipt Date: 20111117
  Transmission Date: 20120403
  Serious: Yes (Other)
  Sender: FDA-Public Use
  Company Number: BR-PFIZER INC-2011281959

PATIENT
  Age: 48 Year
  Sex: Female

DRUGS (3)
  1. LYRICA [Suspect]
     Indication: PAIN
     Dosage: 75 MG, 1X/DAY
     Route: 048
     Dates: start: 20090101, end: 20110817
  2. LEVOTHYROXINE SODIUM [Concomitant]
     Indication: THYROID DISORDER
     Dosage: ONE TABLET 1X/DAY
     Dates: start: 19981117
  3. PAMELOR [Concomitant]
     Indication: ANTIDEPRESSANT THERAPY
     Dosage: ONE TABLET 1X/DAY
     Dates: start: 20091117

REACTIONS (1)
  - JOINT SWELLING [None]
